FAERS Safety Report 6742605-9 (Version None)
Quarter: 2010Q2

REPORT INFORMATION
  Report Type: 
  Country: None (occurrence: None)
  Receive Date: 20100524
  Receipt Date: 20100413
  Transmission Date: 20101027
  Serious: No
  Sender: FDA-Public Use
  Company Number: ACO_00694_2010

PATIENT
  Sex: Female
  Weight: 58.0604 kg

DRUGS (8)
  1. AMPYRA [Suspect]
     Indication: MULTIPLE SCLEROSIS
     Dosage: (10 MG BID ORAL)
     Route: 048
     Dates: start: 20100412
  2. COPAXONE [Concomitant]
  3. DILANTIN [Concomitant]
  4. FISH OIL [Concomitant]
  5. CALCIUM CARBONATE [Concomitant]
  6. VITAMIN D3 [Concomitant]
  7. ESTROVEN /02150801/ [Concomitant]
  8. TRIPHALE [Concomitant]

REACTIONS (3)
  - BURNING SENSATION [None]
  - CONDITION AGGRAVATED [None]
  - PAIN OF SKIN [None]
